FAERS Safety Report 21889708 (Version 1)
Quarter: 2023Q1

REPORT INFORMATION
  Report Type: Spontaneous
  Country: US (occurrence: US)
  Receive Date: 20230120
  Receipt Date: 20230120
  Transmission Date: 20230418
  Serious: No
  Sender: FDA-Public Use
  Company Number: US-PFIZER INC-PV202300011494

PATIENT
  Age: 31 Year
  Sex: Male

DRUGS (2)
  1. EUCRISA [Suspect]
     Active Substance: CRISABOROLE
     Indication: Dermatitis atopic
     Dosage: 2 %, 2X/DAY
  2. EUCRISA [Suspect]
     Active Substance: CRISABOROLE
     Indication: Dyshidrotic eczema

REACTIONS (1)
  - Dermatitis atopic [Unknown]
